FAERS Safety Report 17465216 (Version 1)
Quarter: 2020Q1

REPORT INFORMATION
  Report Type: Spontaneous
  Country: US (occurrence: US)
  Receive Date: 20200226
  Receipt Date: 20200226
  Transmission Date: 20200409
  Serious: Yes (Life-Threatening, Other)
  Sender: FDA-Public Use
  Company Number: US-ALLERGAN-2008723US

PATIENT
  Sex: Female

DRUGS (6)
  1. SUMATRIPTAN. [Interacting]
     Active Substance: SUMATRIPTAN
     Indication: MIGRAINE
     Dosage: 100 MG
  2. VENLAFAXINE                        /01233802/ [Concomitant]
     Active Substance: VENLAFAXINE HYDROCHLORIDE
  3. ACETYLSALICYLIC ACID [Concomitant]
     Active Substance: ASPIRIN
  4. ENALAPRIL                          /00574902/ [Concomitant]
     Active Substance: ENALAPRIL
  5. ESTRADIOL UNK [Suspect]
     Active Substance: ESTRADIOL
     Indication: PRODUCT USED FOR UNKNOWN INDICATION
  6. ATORVASTATIN                       /01326102/ [Concomitant]
     Active Substance: ATORVASTATIN

REACTIONS (2)
  - Drug interaction [Recovering/Resolving]
  - Colitis ischaemic [Recovering/Resolving]
